FAERS Safety Report 5903422-2 (Version None)
Quarter: 2008Q3

REPORT INFORMATION
  Report Type: 
  Country: None (occurrence: None)
  Receive Date: 20080926
  Receipt Date: 20080923
  Transmission Date: 20090109
  Serious: Yes (Other)
  Sender: FDA-Public Use
  Company Number: 2008SP014537

PATIENT
  Age: 55 Year
  Sex: Female

DRUGS (16)
  1. PEG-INTRON [Suspect]
     Indication: HEPATITIS C
     Dosage: 150 MCG;QW;SC
     Route: 058
     Dates: start: 20080610
  2. REBETOL [Suspect]
     Indication: HEPATITIS C
     Dosage: 1400 MG;QD;PO
     Route: 048
     Dates: start: 20080610
  3. WELLBURTRIN [Concomitant]
  4. BUSPAR [Concomitant]
  5. LORTAB [Concomitant]
  6. DYAZIDE [Concomitant]
  7. ALBUTEROL [Concomitant]
  8. UNIPHYL [Concomitant]
  9. SINGULAIR [Concomitant]
  10. PREVACID [Concomitant]
  11. ALLOPURINOL [Concomitant]
  12. M.V.I. [Concomitant]
  13. XANAX [Concomitant]
  14. SPIRIVA [Concomitant]
  15. ASMANEX TWISTHALER [Concomitant]
  16. OXYCODONE HCL [Concomitant]

REACTIONS (4)
  - COUGH [None]
  - DEPRESSION [None]
  - FEELING ABNORMAL [None]
  - LUNG NEOPLASM MALIGNANT [None]
